FAERS Safety Report 20033847 (Version 11)
Quarter: 2024Q4

REPORT INFORMATION
  Report Type: Spontaneous
  Country: US (occurrence: US)
  Receive Date: 20211104
  Receipt Date: 20241113
  Transmission Date: 20250114
  Serious: Yes (Hospitalization, Other)
  Sender: PFIZER
  Company Number: US-PFIZER INC-202101432130

PATIENT
  Age: 65 Year
  Sex: Female
  Weight: 80.29 kg

DRUGS (10)
  1. IBRANCE [Suspect]
     Active Substance: PALBOCICLIB
     Indication: Breast cancer female
     Dosage: 125 MG, CYCLIC (ONCE A DAY 3 WEEKS ON, THEN OFF 7 DAYS)
     Route: 048
     Dates: start: 202109
  2. IBRANCE [Suspect]
     Active Substance: PALBOCICLIB
     Indication: Breast cancer metastatic
     Dosage: TAKE 1 ONCE DAILY ON DAYS 1-21 OF EVERY 28 DAY CYCLE
     Route: 048
  3. IBRANCE [Suspect]
     Active Substance: PALBOCICLIB
     Dosage: : TAKE 1 P.O. ORALLY ONCE DAILY ON DAYS 1-21 OF EVERY 28 DAY CYCLE
     Route: 048
  4. LETROZOLE [Concomitant]
     Active Substance: LETROZOLE
     Indication: Hormone therapy
     Dosage: 2.5 MG, 1X/DAY
     Route: 048
     Dates: start: 202109
  5. LOSARTAN [Concomitant]
     Active Substance: LOSARTAN
     Indication: Hypertension
     Dosage: 25 MG, 1X/DAY
     Route: 048
     Dates: start: 20210811
  6. LOSARTAN [Concomitant]
     Active Substance: LOSARTAN
     Dosage: UNK
     Dates: start: 202111
  7. AMLODIPINE [Concomitant]
     Active Substance: AMLODIPINE BESYLATE
     Indication: Hypertension
     Dosage: 10 MG, 1X/DAY
     Route: 048
     Dates: start: 20210811
  8. AMLODIPINE [Concomitant]
     Active Substance: AMLODIPINE BESYLATE
     Dosage: UNK
     Dates: start: 202107
  9. CHOLECALCIFEROL [Concomitant]
     Active Substance: CHOLECALCIFEROL
     Dosage: 50 UG, 1X/DAY
     Route: 048
     Dates: start: 2021
  10. CHOLECALCIFEROL [Concomitant]
     Active Substance: CHOLECALCIFEROL
     Dosage: UNK
     Dates: start: 202203, end: 202205

REACTIONS (15)
  - Joint injury [Not Recovered/Not Resolved]
  - Arthralgia [Not Recovered/Not Resolved]
  - Pain in extremity [Not Recovered/Not Resolved]
  - Rotator cuff syndrome [Not Recovered/Not Resolved]
  - Motor dysfunction [Not Recovered/Not Resolved]
  - Fatigue [Recovered/Resolved]
  - Somnolence [Recovered/Resolved]
  - Arthritis [Not Recovered/Not Resolved]
  - Exostosis [Not Recovered/Not Resolved]
  - Joint swelling [Recovering/Resolving]
  - Peripheral swelling [Recovering/Resolving]
  - Dysstasia [Recovered/Resolved]
  - Emotional distress [Unknown]
  - Pain [Unknown]
  - Fall [Unknown]

NARRATIVE: CASE EVENT DATE: 20210101
